FAERS Safety Report 16570370 (Version 1)
Quarter: 2019Q3

REPORT INFORMATION
  Report Type: Spontaneous
  Country: US (occurrence: US)
  Receive Date: 20190715
  Receipt Date: 20190715
  Transmission Date: 20191004
  Serious: Yes (Other)
  Sender: FDA-Public Use
  Company Number: US-TEVA-2019-US-1076226

PATIENT
  Age: 73 Year
  Sex: Female

DRUGS (2)
  1. FEXOFENADINE [Concomitant]
     Active Substance: FEXOFENADINE HYDROCHLORIDE
  2. QVAR REDIHALER [Suspect]
     Active Substance: BECLOMETHASONE DIPROPIONATE
     Indication: ASTHMA
     Route: 055

REACTIONS (10)
  - Hypersensitivity [Recovering/Resolving]
  - Wrong technique in product usage process [Unknown]
  - Cough [Recovering/Resolving]
  - Product substitution issue [Unknown]
  - Dermatitis allergic [Unknown]
  - Discomfort [Recovering/Resolving]
  - Pulmonary oedema [Recovering/Resolving]
  - Oral discharge [Recovering/Resolving]
  - Throat tightness [Recovering/Resolving]
  - Rhinorrhoea [Recovering/Resolving]
